FAERS Safety Report 8180300-2 (Version None)
Quarter: 2012Q1

REPORT INFORMATION
  Report Type: 
  Country: None (occurrence: None)
  Receive Date: 20120302
  Receipt Date: 20120223
  Transmission Date: 20120608
  Serious: Yes (Hospitalization)
  Sender: FDA-Public Use
  Company Number: US-AMGEN-USASP2012012136

PATIENT
  Age: 55 Year
  Sex: Female

DRUGS (1)
  1. ENBREL [Suspect]
     Indication: PSORIATIC ARTHROPATHY
     Dosage: 25 MG, 2 TIMES/WK
     Dates: start: 20071030

REACTIONS (8)
  - LOSS OF CONSCIOUSNESS [None]
  - FALL [None]
  - INJECTION SITE PAIN [None]
  - DIARRHOEA [None]
  - PAIN [None]
  - DEHYDRATION [None]
  - INTERVERTEBRAL DISC DEGENERATION [None]
  - ASTHENIA [None]
